FAERS Safety Report 24380128 (Version 2)
Quarter: 2025Q3

REPORT INFORMATION
  Report Type: Spontaneous
  Country: US (occurrence: US)
  Receive Date: 20240930
  Receipt Date: 20250810
  Transmission Date: 20251020
  Serious: No
  Sender: ALEXION PHARMACEUTICALS
  Company Number: US-DAIICHI SANKYO, INC.-DSU-2024-144328

PATIENT
  Sex: Female

DRUGS (1)
  1. ENHERTU [Suspect]
     Active Substance: FAM-TRASTUZUMAB DERUXTECAN-NXKI
     Indication: Breast cancer

REACTIONS (2)
  - Limbal stem cell deficiency [Recovered/Resolved]
  - Ocular toxicity [Recovered/Resolved]
